FAERS Safety Report 7910874-5 (Version None)
Quarter: 2011Q4

REPORT INFORMATION
  Report Type: 
  Country: None (occurrence: None)
  Receive Date: 20111114
  Receipt Date: 20111104
  Transmission Date: 20120403
  Serious: Yes (Other)
  Sender: FDA-Public Use
  Company Number: US-BIOGENIDEC-2011BI042195

PATIENT
  Age: 48 Year
  Sex: Female

DRUGS (2)
  1. AVONEX [Suspect]
     Indication: MULTIPLE SCLEROSIS
     Route: 030
     Dates: start: 20021001
  2. COPAXONE [Concomitant]

REACTIONS (4)
  - NECROSIS [None]
  - ADVERSE EVENT [None]
  - VASCULAR INJURY [None]
  - INFLUENZA LIKE ILLNESS [None]
